FAERS Safety Report 6371089-8 (Version None)
Quarter: 2009Q3

REPORT INFORMATION
  Report Type: 
  Country: None (occurrence: None)
  Receive Date: 20090923
  Receipt Date: 20090914
  Transmission Date: 20100115
  Serious: Yes (Other)
  Sender: FDA-Public Use
  Company Number: PHEH2006US01251

PATIENT

DRUGS (4)
  1. AREDIA [Suspect]
     Dosage: 90MG MONTHLY
     Route: 042
     Dates: start: 20010426
  2. ZOMETA [Suspect]
     Indication: MULTIPLE MYELOMA
     Dosage: UNK,UNK
     Route: 042
     Dates: start: 20010101, end: 20050603
  3. VIOXX [Suspect]
     Indication: RHEUMATOID ARTHRITIS
     Dosage: 50MG, UNK
     Dates: start: 20040101, end: 20040101
  4. MULTI-VITAMINS [Concomitant]

REACTIONS (21)
  - ABSCESS ORAL [None]
  - ANTINUCLEAR ANTIBODY POSITIVE [None]
  - ARTHRALGIA [None]
  - BONE DEBRIDEMENT [None]
  - BONE LESION [None]
  - DEBRIDEMENT [None]
  - ENDODONTIC PROCEDURE [None]
  - HYPERBARIC OXYGEN THERAPY [None]
  - INTERVERTEBRAL DISC PROTRUSION [None]
  - MOUTH ULCERATION [None]
  - NECK PAIN [None]
  - NODULE [None]
  - ORAL PUSTULE [None]
  - OSTEOMYELITIS [None]
  - OSTEONECROSIS [None]
  - PAIN IN JAW [None]
  - RHEUMATOID ARTHRITIS [None]
  - STAPHYLOCOCCAL INFECTION [None]
  - STOMATITIS [None]
  - SWELLING [None]
  - TOOTH EXTRACTION [None]
